FAERS Safety Report 23972950 (Version 8)
Quarter: 2025Q1

REPORT INFORMATION
  Report Type: Report from Study
  Country: US (occurrence: US)
  Receive Date: 20240613
  Receipt Date: 20250220
  Transmission Date: 20250409
  Serious: Yes (Other)
  Sender: ASTELLAS
  Company Number: US-ASTELLAS-2024US011087

PATIENT
  Sex: Male

DRUGS (1)
  1. ENZALUTAMIDE [Suspect]
     Active Substance: ENZALUTAMIDE
     Indication: Prostate cancer
     Route: 048
     Dates: start: 20240216, end: 202502

REACTIONS (14)
  - Malignant neoplasm progression [Unknown]
  - Atrial fibrillation [Unknown]
  - Myocardial ischaemia [Unknown]
  - Hallucination [Unknown]
  - Internal haemorrhage [Unknown]
  - Decreased appetite [Recovering/Resolving]
  - Pruritus [Unknown]
  - Insomnia [Unknown]
  - Pollakiuria [Unknown]
  - Discomfort [Unknown]
  - Renal pain [Unknown]
  - Delusion [Unknown]
  - Weight decreased [Recovering/Resolving]
  - Product dose omission in error [Unknown]

NARRATIVE: CASE EVENT DATE: 20240101
